FAERS Safety Report 19274833 (Version 7)
Quarter: 2023Q2

REPORT INFORMATION
  Report Type: Spontaneous
  Country: US (occurrence: US)
  Receive Date: 20210519
  Receipt Date: 20230517
  Transmission Date: 20230722
  Serious: Yes (Hospitalization, Other)
  Sender: FDA-Public Use
  Company Number: US-PFIZER INC-2021514873

PATIENT
  Age: 61 Year
  Sex: Male
  Weight: 87.837 kg

DRUGS (2)
  1. VANCOMYCIN HYDROCHLORIDE [Suspect]
     Active Substance: VANCOMYCIN HYDROCHLORIDE
     Indication: Antibiotic prophylaxis
     Dosage: UNK
     Route: 042
     Dates: start: 20190203, end: 201902
  2. VANCOMYCIN HYDROCHLORIDE [Suspect]
     Active Substance: VANCOMYCIN HYDROCHLORIDE
     Indication: Staphylococcal infection
     Dosage: UNK
     Route: 042
     Dates: start: 20190422, end: 20190424

REACTIONS (26)
  - Vancomycin infusion reaction [Unknown]
  - Anaphylactic reaction [Unknown]
  - Renal failure [Recovering/Resolving]
  - Dyspnoea [Unknown]
  - Cardiac arrest [Recovered/Resolved with Sequelae]
  - Myelosuppression [Unknown]
  - Pyrexia [Unknown]
  - Influenza like illness [Unknown]
  - Chills [Unknown]
  - Thinking abnormal [Unknown]
  - Coordination abnormal [Unknown]
  - Burning sensation [Unknown]
  - Feeling hot [Unknown]
  - Blood pressure decreased [Recovered/Resolved]
  - Cardiac disorder [Unknown]
  - Heart rate irregular [Unknown]
  - Disturbance in attention [Not Recovered/Not Resolved]
  - Memory impairment [Not Recovered/Not Resolved]
  - Hypervolaemia [Recovering/Resolving]
  - Myalgia [Unknown]
  - Confusional state [Unknown]
  - Drug hypersensitivity [Unknown]
  - Pain in extremity [Unknown]
  - Throat tightness [Unknown]
  - Hypotension [Unknown]
  - Leukocytosis [Unknown]

NARRATIVE: CASE EVENT DATE: 20190101
